FAERS Safety Report 5130285-8 (Version None)
Quarter: 2006Q4

REPORT INFORMATION
  Report Type: 
  Country: None (occurrence: None)
  Receive Date: 20061013
  Receipt Date: 20060926
  Transmission Date: 20070319
  Serious: Yes (Hospitalization)
  Sender: FDA-Public Use
  Company Number: US200609006768

PATIENT
  Age: 45 Year
  Sex: Male

DRUGS (5)
  1. HUMALOG [Suspect]
     Indication: DIABETES MELLITUS INSULIN-DEPENDENT
     Dosage: 1 UNIT PER 15 GRAMS OF CARBOHYDRATES
     Dates: start: 20000101
  2. LANTUS [Concomitant]
  3. VALIUM /NET/ (DIAZEPAM) [Concomitant]
  4. BACLOFEN [Concomitant]
  5. ALL OTHER THERAPEUTIC PRODUCTS [Concomitant]

REACTIONS (12)
  - ALCOHOL USE [None]
  - BLOOD GLUCOSE DECREASED [None]
  - FACE INJURY [None]
  - FALL [None]
  - MUSCULAR WEAKNESS [None]
  - PHARMACEUTICAL PRODUCT COMPLAINT [None]
  - ROAD TRAFFIC ACCIDENT [None]
  - SCIATIC NERVE INJURY [None]
  - STIFF-MAN SYNDROME [None]
  - TREMOR [None]
  - VISUAL ACUITY REDUCED [None]
  - VISUAL DISTURBANCE [None]
